FAERS Safety Report 6233924-3 (Version None)
Quarter: 2009Q2

REPORT INFORMATION
  Report Type: 
  Country: None (occurrence: None)
  Receive Date: 20090618
  Receipt Date: 20090609
  Transmission Date: 20091009
  Serious: Yes (Hospitalization)
  Sender: FDA-Public Use
  Company Number: FI-ASTRAZENECA-2009SE02501

PATIENT
  Age: 42 Year
  Sex: Female

DRUGS (6)
  1. SEROQUEL XR [Suspect]
     Indication: BIPOLAR DISORDER
     Route: 048
     Dates: start: 20090211
  2. AEROBEC AUTOHALER [Concomitant]
     Route: 055
  3. CETIRIZINE [Concomitant]
     Route: 048
  4. PREDNISOLONE [Concomitant]
     Route: 048
  5. RANITIDINE HCL [Concomitant]
     Route: 048
  6. IMOVANE [Concomitant]
     Route: 048

REACTIONS (4)
  - ARRHYTHMIA [None]
  - CHEST PAIN [None]
  - HYPERSENSITIVITY [None]
  - MUSCLE TWITCHING [None]
